FAERS Safety Report 7756984-7 (Version None)
Quarter: 2011Q3

REPORT INFORMATION
  Report Type: 
  Country: None (occurrence: None)
  Receive Date: 20110916
  Receipt Date: 20110916
  Transmission Date: 20111222
  Serious: Yes (Other)
  Sender: FDA-Public Use
  Company Number: None

PATIENT
  Sex: Female
  Weight: 70.76 kg

DRUGS (1)
  1. ZYCLARA [Suspect]
     Indication: BASAL CELL CARCINOMA
     Dosage: SMALL APPLICATION
     Route: 061
     Dates: start: 20110809, end: 20110912

REACTIONS (5)
  - CHEST PAIN [None]
  - FLATULENCE [None]
  - DIARRHOEA [None]
  - ABDOMINAL DISCOMFORT [None]
  - ABDOMINAL PAIN UPPER [None]
